FAERS Safety Report 7118919-X (Version None)
Quarter: 2010Q4

REPORT INFORMATION
  Report Type: 
  Country: None (occurrence: None)
  Receive Date: 20101123
  Receipt Date: 20101110
  Transmission Date: 20110411
  Serious: Yes (Hospitalization, Other)
  Sender: FDA-Public Use
  Company Number: JP-ELI_LILLY_AND_COMPANY-JP201010004049

PATIENT
  Sex: Male
  Weight: 51.4 kg

DRUGS (3)
  1. GEMCITABINE HCL [Suspect]
     Indication: GALLBLADDER CANCER
  2. BLINDED THERAPY [Suspect]
     Indication: GALLBLADDER CANCER
     Dosage: 1 ML, WEEKLY (1/W)
     Route: 058
     Dates: start: 20100702, end: 20101001
  3. AMLODIPINE [Concomitant]
     Indication: HYPERTENSION
     Dosage: 5 MG, DAILY (1/D)
     Route: 048

REACTIONS (11)
  - ANAPHYLACTIC REACTION [None]
  - BLOOD CREATININE INCREASED [None]
  - BLOOD UREA INCREASED [None]
  - BLOOD URIC ACID INCREASED [None]
  - BLOOD URINE PRESENT [None]
  - HAEMOLYTIC ANAEMIA [None]
  - HYPOAESTHESIA [None]
  - HYPOCALCAEMIA [None]
  - PLATELET COUNT DECREASED [None]
  - PLEURAL EFFUSION [None]
  - THROMBOTIC MICROANGIOPATHY [None]
